FAERS Safety Report 7434559-7 (Version None)
Quarter: 2011Q2

REPORT INFORMATION
  Report Type: 
  Country: None (occurrence: None)
  Receive Date: 20110420
  Receipt Date: 20110420
  Transmission Date: 20111010
  Serious: No
  Sender: FDA-Public Use
  Company Number: None

PATIENT

DRUGS (1)
  1. ADENOSINE INJECTION 6MG/2ML SYRINGE SAAGENT [Suspect]
     Dosage: 6MG/2ML ONCE IV
     Route: 042
     Dates: start: 20110201, end: 20110315

REACTIONS (4)
  - INCORRECT DOSE ADMINISTERED [None]
  - PRODUCT PACKAGING ISSUE [None]
  - SYRINGE ISSUE [None]
  - PRODUCT SUBSTITUTION ISSUE [None]
